FAERS Safety Report 5678215-4 (Version None)
Quarter: 2008Q1

REPORT INFORMATION
  Report Type: 
  Country: None (occurrence: None)
  Receive Date: 20080319
  Receipt Date: 20080303
  Transmission Date: 20080703
  Serious: Yes (Death, Hospitalization)
  Sender: FDA-Public Use
  Company Number: GXKR2008NL01934

PATIENT
  Age: 74 Year
  Sex: Female

DRUGS (7)
  1. CLOZAPINE [Suspect]
     Indication: PSYCHOTIC DISORDER
     Dosage: 150 MG, QD
  2. OLANZAPINE [Concomitant]
  3. RISPERDAL [Concomitant]
  4. QUETIAPINE FUMARATE [Concomitant]
  5. ATENOLOL [Concomitant]
  6. DEHYDROBENZPERIDOL (DROPERIDOL) [Concomitant]
  7. ZUCLOPENTHIXOL ACETATE (ZUCLOPENTHIXOL ACETATE) [Concomitant]

REACTIONS (13)
  - ACUTE FEBRILE NEUTROPHILIC DERMATOSIS [None]
  - AGRANULOCYTOSIS [None]
  - CIRCULATORY COLLAPSE [None]
  - DELUSION [None]
  - EOSINOPHILIA [None]
  - HALLUCINATION, AUDITORY [None]
  - INCOHERENT [None]
  - LEUKOCYTOSIS [None]
  - LEUKOPENIA [None]
  - NEUTROPENIA [None]
  - RASH ERYTHEMATOUS [None]
  - SEPTIC SHOCK [None]
  - URINARY TRACT INFECTION [None]
